FAERS Safety Report 10286840 (Version 1)
Quarter: 2014Q3

REPORT INFORMATION
  Report Type: Report from Study
  Country: US (occurrence: US)
  Receive Date: 20140709
  Receipt Date: 20140709
  Transmission Date: 20150326
  Serious: Yes (Death)
  Sender: FDA-Public Use
  Company Number: US-SA-2014SA088815

PATIENT
  Age: 71 Year
  Sex: Male

DRUGS (1)
  1. RENVELA [Suspect]
     Active Substance: SEVELAMER CARBONATE
     Indication: RENAL FAILURE CHRONIC
     Dosage: RENVELA 800 MG FIVE TABLETS THREE TIMES DAILY
     Route: 065
     Dates: end: 20140613

REACTIONS (1)
  - Death [Fatal]

NARRATIVE: CASE EVENT DATE: 20140613
